FAERS Safety Report 19415654 (Version 1)
Quarter: 2021Q2

REPORT INFORMATION
  Report Type: Spontaneous
  Country: US (occurrence: US)
  Receive Date: 20210614
  Receipt Date: 20210614
  Transmission Date: 20210717
  Serious: No
  Sender: FDA-Public Use
  Company Number: None

PATIENT
  Age: 52 Year
  Sex: Female
  Weight: 104.4 kg

DRUGS (1)
  1. ASENAPINE. [Suspect]
     Active Substance: ASENAPINE
     Route: 060
     Dates: start: 20170221

REACTIONS (3)
  - Tongue discomfort [None]
  - Product substitution issue [None]
  - Product solubility abnormal [None]

NARRATIVE: CASE EVENT DATE: 20210613
